FAERS Safety Report 17538038 (Version 1)
Quarter: 2020Q1

REPORT INFORMATION
  Report Type: Spontaneous
  Country: CN (occurrence: CN)
  Receive Date: 20200313
  Receipt Date: 20200313
  Transmission Date: 20200409
  Serious: Yes (Other)
  Sender: FDA-Public Use
  Company Number: ALC2020CN002208

PATIENT
  Age: 40 Year
  Sex: Male
  Weight: 74 kg

DRUGS (1)
  1. FLUORESCITE [Suspect]
     Active Substance: FLUORESCEIN SODIUM
     Indication: PRODUCT USED FOR UNKNOWN INDICATION
     Dosage: 2.500 ML, QD
     Route: 042
     Dates: start: 20200219, end: 20200219

REACTIONS (3)
  - Heart rate increased [Recovering/Resolving]
  - Rash [Recovering/Resolving]
  - Blood pressure decreased [Recovering/Resolving]

NARRATIVE: CASE EVENT DATE: 20200219
